FAERS Safety Report 18206228 (Version 2)
Quarter: 2020Q3

REPORT INFORMATION
  Report Type: Spontaneous
  Country: US (occurrence: US)
  Receive Date: 20200828
  Receipt Date: 20200909
  Transmission Date: 20201103
  Serious: Yes (Life-Threatening, Hospitalization, Other)
  Sender: FDA-Public Use
  Company Number: US-AUROBINDO-AUR-APL-2020-044730

PATIENT
  Age: 89 Year
  Sex: Female

DRUGS (3)
  1. VERAPAMIL HYDROCHLORIDE. [Interacting]
     Active Substance: VERAPAMIL HYDROCHLORIDE
     Dosage: 280 MILLIGRAM, ONCE A DAY
     Route: 065
  2. MILK OF MAGNESIA [Suspect]
     Active Substance: MAGNESIUM HYDROXIDE
     Indication: CONSTIPATION
     Dosage: UNK
     Route: 048
  3. VERAPAMIL HYDROCHLORIDE. [Interacting]
     Active Substance: VERAPAMIL HYDROCHLORIDE
     Indication: HYPERTENSION
     Dosage: 240 MILLIGRAM, ONCE A DAY
     Route: 065

REACTIONS (5)
  - Fall [Unknown]
  - Bradyarrhythmia [Recovered/Resolved]
  - Nodal rhythm [Recovered/Resolved]
  - Drug interaction [Recovering/Resolving]
  - Hypermagnesaemia [Unknown]
